FAERS Safety Report 18443340 (Version 1)
Quarter: 2020Q4

REPORT INFORMATION
  Report Type: Spontaneous
  Country: TW (occurrence: TW)
  Receive Date: 20201030
  Receipt Date: 20201030
  Transmission Date: 20210114
  Serious: Yes (Other)
  Sender: FDA-Public Use
  Company Number: TW-AMGEN-TWNSP2020172004

PATIENT
  Age: 73 Year
  Sex: Female

DRUGS (1)
  1. PROLIA [Suspect]
     Active Substance: DENOSUMAB
     Indication: OSTEOPOROSIS
     Dosage: UNK, Q6MO
     Route: 058
     Dates: start: 2016

REACTIONS (4)
  - Tendon rupture [Unknown]
  - Spinal deformity [Recovered/Resolved]
  - Fall [Unknown]
  - Spinal column injury [Recovered/Resolved]

NARRATIVE: CASE EVENT DATE: 202006
